FAERS Safety Report 17188095 (Version 5)
Quarter: 2022Q3

REPORT INFORMATION
  Report Type: Spontaneous
  Country: CA (occurrence: CA)
  Receive Date: 20191221
  Receipt Date: 20220726
  Transmission Date: 20221026
  Serious: Yes (Other)
  Sender: FDA-Public Use
  Company Number: CA-ACCORD-166249

PATIENT
  Age: 15 Year
  Sex: Male
  Weight: 127.0 kg

DRUGS (5)
  1. QUETIAPINE FUMARATE [Suspect]
     Active Substance: QUETIAPINE FUMARATE
     Indication: Behaviour disorder
     Dosage: 50MG QHS?QHS, EVERY BEDTIME, 1 EVERY 1 DAYS (730.0 DAYS)
     Route: 048
  2. SERTRALINE [Suspect]
     Active Substance: SERTRALINE HYDROCHLORIDE
     Indication: Behaviour disorder
     Dosage: 100 MG QAM?EVERY MORNING, 1 EVERY 1 DAYS (730.0 DAYS)
     Route: 065
  3. OLANZAPINE [Suspect]
     Active Substance: OLANZAPINE
     Indication: Behaviour disorder
     Dosage: 2 EVERY 1 DAYS (730.0 DAYS)
     Route: 065
  4. CLONIDINE [Suspect]
     Active Substance: CLONIDINE
     Indication: Behaviour disorder
     Dosage: 2 EVERY 1 DAYS (730.0 DAYS)
     Route: 065
  5. LAMOTRIGINE [Suspect]
     Active Substance: LAMOTRIGINE
     Indication: Behaviour disorder
     Dosage: QHS, EVERY BEDTIME, 2 EVERY 1 DAYS (210.0 DAYS)
     Route: 065

REACTIONS (4)
  - Overweight [Recovered/Resolved]
  - Blood prolactin increased [Recovered/Resolved]
  - Drug ineffective [Unknown]
  - Off label use [Unknown]
